FAERS Safety Report 5102809-8 (Version None)
Quarter: 2006Q3

REPORT INFORMATION
  Report Type: 
  Country: None (occurrence: None)
  Receive Date: 20060907
  Receipt Date: 20060829
  Transmission Date: 20061208
  Serious: Yes (Hospitalization)
  Sender: FDA-Public Use
  Company Number: 2006105005

PATIENT
  Age: 45 Year
  Sex: Female

DRUGS (2)
  1. PROSTIN E2 [Suspect]
     Indication: OFF LABEL USE
     Dosage: 2CC/HOUR (DAILY), INTRAVENOUS
     Route: 042
     Dates: start: 20060821, end: 20060827
  2. ANTIHYPERTENSIVES [Concomitant]

REACTIONS (4)
  - BLOOD CULTURE POSITIVE [None]
  - DRUG HYPERSENSITIVITY [None]
  - OFF LABEL USE [None]
  - PNEUMONIA [None]
